FAERS Safety Report 14983889 (Version 1)
Quarter: 2018Q2

REPORT INFORMATION
  Report Type: Spontaneous
  Country: US (occurrence: US)
  Receive Date: 20180517
  Receipt Date: 20180517
  Transmission Date: 20180711
  Serious: No
  Sender: FDA-Public Use
  Company Number: None

PATIENT
  Age: 52 Year
  Sex: Female
  Weight: 103.5 kg

DRUGS (2)
  1. EXTRA STRENGTH PAIN RELIEVER [Suspect]
     Active Substance: ACETAMINOPHEN
     Indication: INFLUENZA
     Dosage: ?          QUANTITY:2 DF DOSAGE FORM;?
     Route: 048
     Dates: start: 20180505, end: 20180513
  2. EXTRA STRENGTH PAIN RELIEVER [Suspect]
     Active Substance: ACETAMINOPHEN
     Indication: PAIN
     Dosage: ?          QUANTITY:2 DF DOSAGE FORM;?
     Route: 048
     Dates: start: 20180505, end: 20180513

REACTIONS (5)
  - Product odour abnormal [None]
  - Dysgeusia [None]
  - Nausea [None]
  - Product quality issue [None]
  - Cough [None]

NARRATIVE: CASE EVENT DATE: 20180514
